FAERS Safety Report 5531761-6 (Version None)
Quarter: 2007Q4

REPORT INFORMATION
  Report Type: 
  Country: None (occurrence: None)
  Receive Date: 20071128
  Receipt Date: 20071128
  Transmission Date: 20080405
  Serious: No
  Sender: FDA-Public Use
  Company Number: None

PATIENT
  Sex: Male

DRUGS (1)
  1. LYRICA [Suspect]
     Indication: SCIATICA
     Dates: start: 20070920

REACTIONS (1)
  - VISION BLURRED [None]
